FAERS Safety Report 12805590 (Version 3)
Quarter: 2017Q4

REPORT INFORMATION
  Report Type: Spontaneous
  Country: US (occurrence: US)
  Receive Date: 20161004
  Receipt Date: 20171002
  Transmission Date: 20180320
  Serious: No
  Sender: FDA-Public Use
  Company Number: US-BAYER-2016-191777

PATIENT
  Age: 58 Year
  Sex: Female
  Weight: 97.51 kg

DRUGS (1)
  1. ALEVE [Suspect]
     Active Substance: NAPROXEN SODIUM
     Indication: PAIN
     Dosage: 1 DF, UNK
     Route: 048

REACTIONS (3)
  - Product use in unapproved indication [None]
  - Therapeutic response unexpected [Unknown]
  - Unevaluable event [Unknown]

NARRATIVE: CASE EVENT DATE: 2012
